FAERS Safety Report 17760608 (Version 5)
Quarter: 2021Q1

REPORT INFORMATION
  Report Type: Report from Study
  Country: US (occurrence: US)
  Receive Date: 20200508
  Receipt Date: 20210119
  Transmission Date: 20210419
  Serious: Yes (Hospitalization, Other)
  Sender: FDA-Public Use
  Company Number: US-AGIOS-2004US01882

PATIENT

DRUGS (2)
  1. TIBSOVO [Suspect]
     Active Substance: IVOSIDENIB
     Indication: ACUTE MYELOID LEUKAEMIA
     Dosage: 250MG, 2 TABLETS (500MG) DAILY
     Route: 048
     Dates: start: 20181220
  2. TIBSOVO [Suspect]
     Active Substance: IVOSIDENIB
     Dosage: 250MG, 2 TABLETS (500MG) DAILY
     Route: 048
     Dates: start: 201812

REACTIONS (7)
  - Cardiac disorder [Unknown]
  - Dehydration [Unknown]
  - Disease risk factor [Unknown]
  - Blood glucose increased [Unknown]
  - Loss of consciousness [Unknown]
  - Orthostatic hypotension [Unknown]
  - Head injury [Unknown]

NARRATIVE: CASE EVENT DATE: 202006
